FAERS Safety Report 8480232-6 (Version None)
Quarter: 2012Q2

REPORT INFORMATION
  Report Type: 
  Country: None (occurrence: None)
  Receive Date: 20120629
  Receipt Date: 20120622
  Transmission Date: 20120825
  Serious: Yes (Hospitalization)
  Sender: FDA-Public Use
  Company Number: US-ASTRAZENECA-2011SE49871

PATIENT
  Age: 53 Year
  Sex: Female
  Weight: 107 kg

DRUGS (5)
  1. CRESTOR [Suspect]
     Indication: BLOOD CHOLESTEROL ABNORMAL
     Route: 048
  2. OCTIPLUS [Concomitant]
  3. METFORMIN HCL [Concomitant]
  4. SEROQUEL [Suspect]
     Indication: MENTAL DISORDER
     Route: 048
  5. AVANDAMET [Suspect]
     Route: 065

REACTIONS (4)
  - INSOMNIA [None]
  - CEREBROVASCULAR ACCIDENT [None]
  - ADVERSE EVENT [None]
  - DRUG DOSE OMISSION [None]
